FAERS Safety Report 19054413 (Version 1)
Quarter: 2021Q1

REPORT INFORMATION
  Report Type: Report from Study
  Country: US (occurrence: US)
  Receive Date: 20210324
  Receipt Date: 20210324
  Transmission Date: 20210420
  Serious: Yes (Hospitalization, Other)
  Sender: FDA-Public Use
  Company Number: US-TAKEDA-US202013381

PATIENT
  Age: 65 Year
  Sex: Female

DRUGS (2)
  1. GAMMAGARD LIQUID [Suspect]
     Active Substance: HUMAN IMMUNOGLOBULIN G
     Indication: IMMUNODEFICIENCY COMMON VARIABLE
     Dosage: 24 GRAM, 1X/2WKS
     Route: 065
  2. GAMMAGARD LIQUID [Suspect]
     Active Substance: HUMAN IMMUNOGLOBULIN G
     Dosage: 24 GRAM, 1X/2WKS
     Route: 065

REACTIONS (12)
  - Sepsis [Unknown]
  - Fall [Unknown]
  - Pyrexia [Unknown]
  - Conjunctivitis [Unknown]
  - Febrile convulsion [Unknown]
  - Amnesia [Unknown]
  - Concussion [Unknown]
  - Infection [Unknown]
  - Sinusitis [Unknown]
  - Loss of consciousness [Unknown]
  - Road traffic accident [Unknown]
  - Balance disorder [Unknown]

NARRATIVE: CASE EVENT DATE: 20200710
